FAERS Safety Report 6237012-1 (Version None)
Quarter: 2009Q2

REPORT INFORMATION
  Report Type: 
  Country: None (occurrence: None)
  Receive Date: 20090619
  Receipt Date: 20090423
  Transmission Date: 20091009
  Serious: No
  Sender: FDA-Public Use
  Company Number: US-ASTRAZENECA-2009UW07396

PATIENT
  Age: 75 Year
  Sex: Female
  Weight: 74.8 kg

DRUGS (11)
  1. SYMBICORT [Suspect]
     Indication: ASTHMA
     Dosage: 640 MG DAILY
     Route: 055
     Dates: start: 20090314
  2. SYNTHROID [Concomitant]
  3. VICODIN [Concomitant]
  4. VALIUM [Concomitant]
  5. VITAMIN D [Concomitant]
  6. ALBUTEROL [Concomitant]
  7. HERBAL SUPPLEMENTS [Concomitant]
  8. COLACE [Concomitant]
  9. MULTI-VITAMIN [Concomitant]
  10. COD LIVER OIL [Concomitant]
  11. PREDNISONE [Concomitant]

REACTIONS (2)
  - ALOPECIA [None]
  - DYSPHONIA [None]
